FAERS Safety Report 5330854-6 (Version None)
Quarter: 2007Q2

REPORT INFORMATION
  Report Type: 
  Country: None (occurrence: None)
  Receive Date: 20070522
  Receipt Date: 20070514
  Transmission Date: 20071010
  Serious: Yes (Death, Other)
  Sender: FDA-Public Use
  Company Number: ZA-ELI_LILLY_AND_COMPANY-ZA200705004012

PATIENT
  Age: 13 Year
  Sex: Female
  Weight: 29 kg

DRUGS (1)
  1. CAPASTAT SULFATE [Suspect]
     Indication: TUBERCULOSIS
     Dosage: 500 MG, DAILY (1/D)
     Route: 030

REACTIONS (6)
  - DEATH [None]
  - DRUG INEFFECTIVE [None]
  - HYPOCALCAEMIA [None]
  - HYPOKALAEMIA [None]
  - HYPOMAGNESAEMIA [None]
  - WEIGHT DECREASED [None]
